FAERS Safety Report 12432209 (Version 1)
Quarter: 2016Q2

REPORT INFORMATION
  Report Type: Spontaneous
  Country: US (occurrence: US)
  Receive Date: 20160603
  Receipt Date: 20160603
  Transmission Date: 20160815
  Serious: Yes (Other)
  Sender: FDA-Public Use
  Company Number: US-BAYER-2016-104566

PATIENT
  Age: 57 Year
  Sex: Female
  Weight: 54.42 kg

DRUGS (2)
  1. BAYER LOW DOSE [Suspect]
     Active Substance: ASPIRIN
     Indication: PROPHYLAXIS
     Dosage: 81 MG, QD
     Route: 048
     Dates: start: 20160527, end: 20160527
  2. BAYER LOW DOSE [Suspect]
     Active Substance: ASPIRIN
     Indication: PROPHYLAXIS
     Dosage: UNK
     Route: 048
     Dates: end: 201511

REACTIONS (10)
  - Musculoskeletal pain [None]
  - Blood urine present [Recovering/Resolving]
  - Paraesthesia [Recovering/Resolving]
  - Pharyngeal erythema [Recovering/Resolving]
  - Tinnitus [Recovering/Resolving]
  - Dysphonia [Recovering/Resolving]
  - Inappropriate schedule of drug administration [None]
  - Throat irritation [Recovering/Resolving]
  - Multiple chemical sensitivity [Recovering/Resolving]
  - Product used for unknown indication [None]
